FAERS Safety Report 5583670-4 (Version None)
Quarter: 2008Q1

REPORT INFORMATION
  Report Type: 
  Country: None (occurrence: None)
  Receive Date: 20080102
  Receipt Date: 20071220
  Transmission Date: 20080703
  Serious: Yes (Life-Threatening, Other)
  Sender: FDA-Public Use
  Company Number: CLOF-1000007

PATIENT
  Age: 12 Year
  Sex: Male

DRUGS (4)
  1. CLOLAR [Suspect]
     Indication: ACUTE LEUKAEMIA
     Dosage: 36 MG, INTRAVENOUS
     Route: 042
     Dates: start: 20071206, end: 20071215
  2. CYCLOPHOSPHAMIDE [Suspect]
     Indication: ACUTE LEUKAEMIA
     Dosage: 240 MG, INTRAVENOUS
     Route: 042
     Dates: start: 20071205, end: 20071215
  3. NALOXONE [Concomitant]
  4. HYDROMORPHONE HCL [Concomitant]

REACTIONS (20)
  - CHEST PAIN [None]
  - FEBRILE NEUTROPENIA [None]
  - GINGIVAL BLEEDING [None]
  - HEART RATE INCREASED [None]
  - HYPOTENSION [None]
  - HYPOXIA [None]
  - INFECTION [None]
  - MUSCULOSKELETAL PAIN [None]
  - NAUSEA [None]
  - PAIN IN EXTREMITY [None]
  - PERICARDIAL EFFUSION [None]
  - PLEURAL EFFUSION [None]
  - PROCTALGIA [None]
  - PYREXIA [None]
  - RENAL FAILURE [None]
  - RESPIRATORY RATE INCREASED [None]
  - SINUS TACHYCARDIA [None]
  - TACHYCARDIA [None]
  - VOMITING [None]
  - WHITE BLOOD CELL DISORDER [None]
